FAERS Safety Report 7590870-0 (Version None)
Quarter: 2011Q3

REPORT INFORMATION
  Report Type: 
  Country: None (occurrence: None)
  Receive Date: 20110705
  Receipt Date: 20110629
  Transmission Date: 20111222
  Serious: Yes (Other)
  Sender: FDA-Public Use
  Company Number: US-B.I. PHARMACEUTICALS,INC./RIDGEFIELD-2011-BP-01282BP

PATIENT
  Sex: Male

DRUGS (7)
  1. SOTALOL HCL [Concomitant]
     Indication: HYPERTENSION
  2. LIPITOR [Concomitant]
     Indication: BLOOD CHOLESTEROL INCREASED
  3. PRADAXA [Suspect]
     Indication: ATRIAL FIBRILLATION
     Dosage: 300 MG
     Route: 048
     Dates: start: 20101101
  4. BENAZEPRIL HYDROCHLORIDE [Concomitant]
     Indication: HYPERTENSION
  5. SPIRONOLACTONE [Suspect]
     Indication: HYPERTENSION
  6. AMLODIPINE [Concomitant]
     Indication: ATRIAL FIBRILLATION
  7. AMLODIPINE [Concomitant]
     Indication: HYPERTENSION

REACTIONS (6)
  - BLOOD POTASSIUM DECREASED [None]
  - NAIL DISORDER [None]
  - POLLAKIURIA [None]
  - MASS [None]
  - ABDOMINAL TENDERNESS [None]
  - RENAL CYST [None]
